FAERS Safety Report 7408835-8 (Version None)
Quarter: 2011Q2

REPORT INFORMATION
  Report Type: 
  Country: None (occurrence: None)
  Receive Date: 20110412
  Receipt Date: 20110330
  Transmission Date: 20111010
  Serious: Yes (Hospitalization)
  Sender: FDA-Public Use
  Company Number: AU-ACTELION-A-CH2011-45767

PATIENT
  Sex: Female
  Weight: 65 kg

DRUGS (6)
  1. TRACLEER [Suspect]
     Dosage: 62.5 MG, BID
     Route: 048
     Dates: start: 20110215, end: 20110315
  2. TRACLEER [Suspect]
     Indication: PULMONARY ARTERIAL HYPERTENSION
     Dosage: 125 MG, BID
     Route: 048
     Dates: start: 20100202, end: 20110214
  3. PANTOPRAZOLE [Concomitant]
  4. CELESTONE [Concomitant]
  5. THYROXIN [Concomitant]
  6. TRACLEER [Suspect]
     Dosage: 62.5 MG, BID
     Route: 048
     Dates: start: 20100101, end: 20100201

REACTIONS (8)
  - CALCINOSIS [None]
  - FLUSHING [None]
  - LIVER FUNCTION TEST ABNORMAL [None]
  - ALANINE AMINOTRANSFERASE INCREASED [None]
  - ASPARTATE AMINOTRANSFERASE INCREASED [None]
  - PSORIASIS [None]
  - BLOOD BILIRUBIN INCREASED [None]
  - PHOTOSENSITIVITY REACTION [None]
